FAERS Safety Report 15952361 (Version 1)
Quarter: 2019Q1

REPORT INFORMATION
  Report Type: Spontaneous
  Country: US (occurrence: US)
  Receive Date: 20190212
  Receipt Date: 20190212
  Transmission Date: 20190417
  Serious: No
  Sender: FDA-Public Use
  Company Number: US-PFIZER INC-2018340339

PATIENT
  Age: 1 Year
  Sex: Male

DRUGS (2)
  1. GENOTROPIN [Suspect]
     Active Substance: SOMATROPIN
     Indication: CHRONIC KIDNEY DISEASE
     Dosage: 0.4 MG, DAILY
  2. GENOTROPIN [Suspect]
     Active Substance: SOMATROPIN
     Indication: CHRONIC KIDNEY DISEASE

REACTIONS (12)
  - Blood phosphorus increased [Unknown]
  - Haemoglobin increased [Unknown]
  - Blood creatinine increased [Unknown]
  - Lymphocyte count increased [Unknown]
  - Eosinophil count decreased [Unknown]
  - Blood potassium increased [Unknown]
  - Serum ferritin increased [Unknown]
  - Anion gap increased [Unknown]
  - Product use in unapproved indication [Unknown]
  - White blood cell count increased [Unknown]
  - Basophil count decreased [Unknown]
  - Red blood cell count increased [Unknown]
